FAERS Safety Report 8459518-7 (Version None)
Quarter: 2012Q2

REPORT INFORMATION
  Report Type: 
  Country: None (occurrence: None)
  Receive Date: 20120622
  Receipt Date: 20120614
  Transmission Date: 20120825
  Serious: Yes (Hospitalization)
  Sender: FDA-Public Use
  Company Number: US-JNJFOC-20120609083

PATIENT
  Sex: Female
  Weight: 52.4 kg

DRUGS (4)
  1. REMICADE [Suspect]
     Indication: CROHN'S DISEASE
     Route: 042
     Dates: start: 20031209
  2. STELARA [Concomitant]
  3. AZATHIOPRINE [Concomitant]
  4. EPIDUO [Concomitant]

REACTIONS (1)
  - CROHN'S DISEASE [None]
